FAERS Safety Report 12988817 (Version 1)
Quarter: 2016Q4

REPORT INFORMATION
  Report Type: Report from Study
  Country: None (occurrence: BR)
  Receive Date: 20161130
  Receipt Date: 20161130
  Transmission Date: 20170207
  Serious: Yes (Other)
  Sender: FDA-Public Use
  Company Number: BR-ABBVIE-16P-020-1795766-00

PATIENT
  Sex: Female
  Weight: 67 kg

DRUGS (4)
  1. RITMONORM [Suspect]
     Active Substance: PROPAFENONE HYDROCHLORIDE
     Indication: ARRHYTHMIA
     Dosage: 300 MG (IN THE MORNING/ AT NIGHT)
     Route: 065
     Dates: start: 201608
  2. EZETIMIBE. [Concomitant]
     Active Substance: EZETIMIBE
     Indication: BLOOD CHOLESTEROL ABNORMAL
  3. SYNTHROID [Suspect]
     Active Substance: LEVOTHYROXINE SODIUM
     Indication: HYPOTHYROIDISM
     Route: 048
     Dates: start: 2010
  4. ONBRIZE [Concomitant]
     Active Substance: INDACATEROL MALEATE
     Indication: BRONCHITIS

REACTIONS (6)
  - Osteoporosis [Not Recovered/Not Resolved]
  - Arrhythmia [Not Recovered/Not Resolved]
  - Dental implantation [Recovered/Resolved]
  - Uterine polyp [Recovered/Resolved]
  - Cataract [Recovered/Resolved]
  - Product use issue [Unknown]

NARRATIVE: CASE EVENT DATE: 2011
